FAERS Safety Report 9470665 (Version 2)
Quarter: 2013Q3

REPORT INFORMATION
  Report Type: Spontaneous
  Country: US (occurrence: US)
  Receive Date: 20130822
  Receipt Date: 20130923
  Transmission Date: 20140515
  Serious: No
  Sender: FDA-Public Use
  Company Number: US-PFIZER INC-2013242051

PATIENT
  Age: 76 Year
  Sex: Female
  Weight: 76.19 kg

DRUGS (9)
  1. EFFEXOR XR [Suspect]
     Indication: DEPRESSION
     Dosage: 75MG IN AM AND 150MG IN THE AFTERNOON
     Route: 048
     Dates: start: 20121029
  2. EFFEXOR XR [Suspect]
     Dosage: 75MG IN THE MORNING AND 150MG IN THE AFTERNOON
     Route: 048
     Dates: start: 20130425, end: 20130826
  3. VENLAFAXINE HCL [Suspect]
     Indication: DEPRESSION
     Dosage: 75 MG, UNK
  4. WARFARIN [Concomitant]
     Dosage: 5 MG, UNK
  5. FUROSEMIDE [Concomitant]
     Dosage: 20 MG, UNK
  6. LISINOPRIL [Concomitant]
     Dosage: 40 MG, UNK
  7. POTASSIUM [Concomitant]
     Dosage: 10 MEQ, UNK
  8. LORAZEPAM [Concomitant]
     Dosage: 1 MG, QHS
  9. BUSPAR [Concomitant]
     Dosage: 5 MG, 3X/DAY

REACTIONS (3)
  - Inappropriate schedule of drug administration [Unknown]
  - Drug ineffective [Unknown]
  - Drug effect decreased [Unknown]
